FAERS Safety Report 6336101-0 (Version None)
Quarter: 2009Q3

REPORT INFORMATION
  Report Type: 
  Country: None (occurrence: None)
  Receive Date: 20090901
  Receipt Date: 20090826
  Transmission Date: 20100115
  Serious: Yes (Life-Threatening, Hospitalization)
  Sender: FDA-Public Use
  Company Number: US-JNJFOC-20080202630

PATIENT
  Sex: Female
  Weight: 58.97 kg

DRUGS (2)
  1. INVEGA [Suspect]
     Indication: AFFECTIVE DISORDER
     Route: 048
  2. SEASONIQUE [Concomitant]
     Indication: CONTRACEPTION

REACTIONS (1)
  - DEEP VEIN THROMBOSIS [None]
